FAERS Safety Report 25962522 (Version 1)
Quarter: 2025Q4

REPORT INFORMATION
  Report Type: Spontaneous
  Country: US (occurrence: None)
  Receive Date: 20251024
  Receipt Date: 20251024
  Transmission Date: 20260117
  Serious: Yes (Other)
  Sender: FDA-CTU
  Company Number: None

PATIENT
  Age: 79 Year
  Sex: Female

DRUGS (1)
  1. BUDESONIDE [Suspect]
     Active Substance: BUDESONIDE
     Dosage: OTHER QUANTITY : UNKNOWN STRENGTH;?OTHER FREQUENCY : UNKNOWN FREQUENCY;?

REACTIONS (4)
  - Oedema [None]
  - Blood pressure increased [None]
  - Dizziness [None]
  - Therapy cessation [None]
